FAERS Safety Report 5879747-6 (Version None)
Quarter: 2008Q3

REPORT INFORMATION
  Report Type: 
  Country: None (occurrence: None)
  Receive Date: 20080911
  Receipt Date: 20080911
  Transmission Date: 20090109
  Serious: Yes (Disabling)
  Sender: FDA-Public Use
  Company Number: None

PATIENT
  Age: 25 Year
  Sex: Female
  Weight: 45.3597 kg

DRUGS (1)
  1. PRO HEALTH TOOTHPAST BLUE MINT CREST [Suspect]
     Indication: DENTAL CARE
     Dosage: 2-3 TIMES PER DAY DENTAL, ABOUT 9-12 MONTHS
     Route: 004

REACTIONS (1)
  - TOOTH DISCOLOURATION [None]
